FAERS Safety Report 10733037 (Version 1)
Quarter: 2015Q1

REPORT INFORMATION
  Report Type: Spontaneous
  Country: US (occurrence: US)
  Receive Date: 20150123
  Receipt Date: 20150123
  Transmission Date: 20150721
  Serious: No
  Sender: FDA-Public Use
  Company Number: US-ASTRAZENECA-2014SE83936

PATIENT
  Age: 3609 Week
  Sex: Female
  Weight: 88.5 kg

DRUGS (5)
  1. SYMBICORT [Suspect]
     Active Substance: BUDESONIDE\FORMOTEROL FUMARATE DIHYDRATE
     Indication: DYSPNOEA
     Dosage: 160/4.5 MCG, NEXT DAY SHE STARTED TAKING 2 PUFFS IN A DAY
     Route: 055
     Dates: start: 20141025
  2. SYMBICORT [Suspect]
     Active Substance: BUDESONIDE\FORMOTEROL FUMARATE DIHYDRATE
     Indication: DYSPNOEA
     Dosage: 160/4.5 MCG, FIRST DAY SHE TOOK ONE PUFF,
     Route: 055
     Dates: start: 20141024
  3. CHLORPHENIRAMINE MALEATE. [Concomitant]
     Active Substance: CHLORPHENIRAMINE MALEATE
     Indication: DRUG HYPERSENSITIVITY
     Route: 048
  4. ALBUTEROL SULFATE. [Concomitant]
     Active Substance: ALBUTEROL SULFATE
     Indication: INHALATION THERAPY
     Dosage: 2 MG/ 5 ML A COUPLE TEASPOONS IN THE MORNING AND A COUPLE TEASPOONS IN THE EVENING
     Route: 048
  5. ALBUTEROL SULFATE. [Concomitant]
     Active Substance: ALBUTEROL SULFATE
     Indication: ALLERGY TO ANIMAL
     Dosage: 2 MG/ 5 ML A COUPLE TEASPOONS IN THE MORNING AND A COUPLE TEASPOONS IN THE EVENING
     Route: 048

REACTIONS (5)
  - Increased bronchial secretion [Unknown]
  - Wrong technique in drug usage process [Unknown]
  - Dysphonia [Not Recovered/Not Resolved]
  - Product use issue [Unknown]
  - Cough [Unknown]

NARRATIVE: CASE EVENT DATE: 20141029
